FAERS Safety Report 8320411-1 (Version None)
Quarter: 2012Q2

REPORT INFORMATION
  Report Type: 
  Country: None (occurrence: None)
  Receive Date: 20120430
  Receipt Date: 20120423
  Transmission Date: 20120825
  Serious: Yes (Hospitalization)
  Sender: FDA-Public Use
  Company Number: US-BAYER-2012-023922

PATIENT
  Age: 29 Year
  Sex: Female

DRUGS (3)
  1. PRILOSEC [Concomitant]
  2. YASMIN [Suspect]
     Dosage: UNK
     Dates: start: 20030501, end: 20040501
  3. SPIRONOLACTONE [Concomitant]

REACTIONS (9)
  - ANXIETY [None]
  - EMOTIONAL DISTRESS [None]
  - INJURY [None]
  - GENERAL PHYSICAL HEALTH DETERIORATION [None]
  - PAIN IN EXTREMITY [None]
  - PULMONARY EMBOLISM [None]
  - DEEP VEIN THROMBOSIS [None]
  - CHEST PAIN [None]
  - PAIN [None]
